FAERS Safety Report 7296277-8 (Version None)
Quarter: 2011Q1

REPORT INFORMATION
  Report Type: 
  Country: None (occurrence: None)
  Receive Date: 20110211
  Receipt Date: 20110211
  Transmission Date: 20110831
  Serious: Yes (Other)
  Sender: FDA-Public Use
  Company Number: None

PATIENT
  Age: 15 Year
  Sex: Male
  Weight: 56.6996 kg

DRUGS (1)
  1. DOXYCYCLINE HYCLATE [Suspect]
     Indication: ACNE
     Dosage: 1 PILL 2/DAY PO
     Route: 048
     Dates: start: 20101209, end: 20110209

REACTIONS (5)
  - DIZZINESS [None]
  - DRUG INTERACTION [None]
  - VISUAL IMPAIRMENT [None]
  - VOMITING [None]
  - HEADACHE [None]
